FAERS Safety Report 5207490-5 (Version None)
Quarter: 2006Q4

REPORT INFORMATION
  Report Type: 
  Country: None (occurrence: None)
  Receive Date: 20061030
  Receipt Date: 20060807
  Transmission Date: 20070319
  Serious: No
  Sender: FDA-Public Use
  Company Number: 2006CT000525

PATIENT
  Age: 16 Year
  Sex: Female
  Weight: 51.3 kg

DRUGS (7)
  1. VENTAVIS [Suspect]
     Indication: PULMONARY HYPERTENSION
     Dosage: 5 UG;5XD;INH
     Route: 055
     Dates: start: 20050915, end: 20060501
  2. ACETAMINOPHEN [Concomitant]
  3. SILDENAFIL CITRATE [Concomitant]
  4. CLONIDINE [Concomitant]
  5. DIGOXIN [Concomitant]
  6. WARFARIN SODIUM [Concomitant]
  7. EPINEPHRINE [Concomitant]

REACTIONS (2)
  - COUGH [None]
  - PHARYNGOLARYNGEAL PAIN [None]
